FAERS Safety Report 9687620 (Version 1)
Quarter: 2013Q4

REPORT INFORMATION
  Report Type: Spontaneous
  Country: US (occurrence: None)
  Receive Date: 20131113
  Receipt Date: 20131113
  Transmission Date: 20140711
  Serious: Yes (Life-Threatening, Hospitalization)
  Sender: FDA-Public Use
  Company Number: None

PATIENT
  Age: 66 Year
  Sex: Female
  Weight: 73 kg

DRUGS (14)
  1. ZOSYN [Suspect]
     Dosage: 2.25G PRE-OP IV
     Route: 042
  2. VIT C [Concomitant]
  3. CITALOPROUT [Concomitant]
  4. DIGOXIN [Concomitant]
  5. DOCUTATE [Concomitant]
  6. FUROSEMIDE [Concomitant]
  7. HEPARIN [Concomitant]
  8. TOPROL XL [Concomitant]
  9. MULTIVIT [Concomitant]
  10. OYSTER CALCIUM [Concomitant]
  11. PANTOPROZOL [Concomitant]
  12. POSTASSIUM [Concomitant]
  13. SIMVASTATIN [Concomitant]
  14. VIT D [Concomitant]

REACTIONS (1)
  - Cardiac arrest [None]
